FAERS Safety Report 10584609 (Version 1)
Quarter: 2014Q4

REPORT INFORMATION
  Report Type: Spontaneous
  Country: FR (occurrence: FR)
  Receive Date: 20141114
  Receipt Date: 20141114
  Transmission Date: 20150529
  Serious: Yes (Death, Life-Threatening, Hospitalization)
  Sender: FDA-Public Use
  Company Number: FR-SA-2014SA154760

PATIENT
  Age: 33 Year
  Sex: Female
  Weight: 42 kg

DRUGS (11)
  1. LERCAN [Concomitant]
     Active Substance: LERCANIDIPINE
     Route: 048
  2. AVLOCARDYL [Concomitant]
     Active Substance: PROPRANOLOL HYDROCHLORIDE
  3. ACTISKENAN [Concomitant]
     Active Substance: MORPHINE SULFATE
  4. RIVOTRIL [Concomitant]
     Active Substance: CLONAZEPAM
  5. METHOTREXATE [Suspect]
     Active Substance: METHOTREXATE
     Route: 048
     Dates: start: 20141013, end: 20141027
  6. INEXIUM [Interacting]
     Active Substance: ESOMEPRAZOLE
     Route: 048
     Dates: end: 20141028
  7. ATACAND [Concomitant]
     Active Substance: CANDESARTAN CILEXETIL
  8. DAFALGAN [Concomitant]
     Active Substance: ACETAMINOPHEN
  9. DUROGESIC [Concomitant]
     Active Substance: FENTANYL
  10. ARAVA [Interacting]
     Active Substance: LEFLUNOMIDE
     Route: 048
     Dates: start: 201403, end: 20141012
  11. CORTANCYL [Concomitant]
     Active Substance: PREDNISONE
     Route: 048

REACTIONS (5)
  - Pyrexia [Not Recovered/Not Resolved]
  - Drug interaction [Unknown]
  - Septic shock [Fatal]
  - Cardiac arrest [Unknown]
  - Pancytopenia [Unknown]

NARRATIVE: CASE EVENT DATE: 20141020
